FAERS Safety Report 12493151 (Version 1)
Quarter: 2016Q2

REPORT INFORMATION
  Report Type: Spontaneous
  Country: BE (occurrence: BE)
  Receive Date: 20160623
  Receipt Date: 20160623
  Transmission Date: 20160815
  Serious: Yes (Hospitalization)
  Sender: FDA-Public Use
  Company Number: BE-OTSUKA-2016_014066

PATIENT
  Age: 39 Year
  Sex: Male

DRUGS (2)
  1. LITHIUM. [Concomitant]
     Active Substance: LITHIUM
     Indication: DEPRESSION
     Dosage: UNK
     Route: 065
  2. ABILIFY MAINTENA [Suspect]
     Active Substance: ARIPIPRAZOLE
     Indication: SCHIZOAFFECTIVE DISORDER
     Route: 030

REACTIONS (3)
  - Off label use [Unknown]
  - Drug dose omission [Unknown]
  - Psychiatric decompensation [Unknown]
